FAERS Safety Report 9607300 (Version 1)
Quarter: 2013Q3

REPORT INFORMATION
  Report Type: Spontaneous
  Country: US (occurrence: None)
  Receive Date: 20130927
  Receipt Date: 20130927
  Transmission Date: 20140515
  Serious: Yes (Other)
  Sender: FDA-Public Use
  Company Number: 1646431

PATIENT
  Age: 50 Year
  Sex: Female
  Weight: 82.73 kg

DRUGS (7)
  1. VANCOMYCIN HYDROCHLORIDE [Suspect]
     Indication: CELLULITIS
     Dosage: 1500 MG, 1 HOUR, IV
     Route: 042
     Dates: start: 20121117, end: 20121121
  2. VANCOMYCIN HYDROCHLORIDE [Suspect]
     Indication: SEPSIS
     Dosage: 1500 MG, 1 HOUR, IV
     Route: 042
     Dates: start: 20121117, end: 20121121
  3. ZOSYN [Concomitant]
  4. SEROQUEL [Concomitant]
  5. ZOFRAN [Concomitant]
  6. ZOLOFT [Concomitant]
  7. AMBIEN [Concomitant]

REACTIONS (1)
  - Renal failure acute [None]
